FAERS Safety Report 9973196 (Version 2)
Quarter: 2014Q1

REPORT INFORMATION
  Report Type: Report from Study
  Country: US (occurrence: US)
  Receive Date: 20140306
  Receipt Date: 20140306
  Transmission Date: 20141002
  Serious: No
  Sender: FDA-Public Use
  Company Number: US-ABBVIE-13P-163-1110554-00

PATIENT
  Age: 30 Year
  Sex: Female

DRUGS (2)
  1. HUMIRA [Suspect]
     Indication: PSORIATIC ARTHROPATHY
     Dosage: LAST TIME PRESCRIBED IN APR 2013
     Route: 058
     Dates: start: 20120904, end: 2013
  2. ENBREL [Concomitant]
     Indication: PSORIATIC ARTHROPATHY
     Dates: start: 2013

REACTIONS (2)
  - Rash maculo-papular [Recovering/Resolving]
  - Rash pruritic [Recovering/Resolving]
